FAERS Safety Report 13064869 (Version 1)
Quarter: 2016Q4

REPORT INFORMATION
  Report Type: Spontaneous
  Country: US (occurrence: US)
  Receive Date: 20161223
  Receipt Date: 20161223
  Transmission Date: 20170207
  Serious: No
  Sender: FDA-Public Use
  Company Number: None

PATIENT
  Age: 68 Year
  Sex: Female

DRUGS (1)
  1. FORTEO [Suspect]
     Active Substance: TERIPARATIDE
     Indication: BONE DENSITY DECREASED
     Dosage: 0.08ML (20MCG) DAILY SUBCUTANEOUSLY
     Route: 058
     Dates: start: 20160311

REACTIONS (2)
  - Weight decreased [None]
  - Memory impairment [None]

NARRATIVE: CASE EVENT DATE: 20161221
